FAERS Safety Report 11090914 (Version 3)
Quarter: 2015Q2

REPORT INFORMATION
  Report Type: Spontaneous
  Country: US (occurrence: US)
  Receive Date: 20150505
  Receipt Date: 20150624
  Transmission Date: 20150821
  Serious: No
  Sender: FDA-Public Use
  Company Number: US-PFIZER INC-2015144439

PATIENT
  Age: 76 Year
  Sex: Female
  Weight: 59 kg

DRUGS (1)
  1. LYRICA [Suspect]
     Active Substance: PREGABALIN
     Indication: NERVE INJURY
     Dosage: 150 MG, DAILY, ONE IN THE MORNING AND ONE AT NIGHT
     Route: 048
     Dates: start: 2012, end: 201503

REACTIONS (4)
  - Ecchymosis [Unknown]
  - Rash macular [Recovering/Resolving]
  - Weight decreased [Unknown]
  - Petechiae [Unknown]

NARRATIVE: CASE EVENT DATE: 2012
